FAERS Safety Report 5770879-X (Version None)
Quarter: 2008Q2

REPORT INFORMATION
  Report Type: 
  Country: None (occurrence: None)
  Receive Date: 20080613
  Receipt Date: 20080529
  Transmission Date: 20081010
  Serious: No
  Sender: FDA-Public Use
  Company Number: US-ABBOTT-08P-163-0452448-00

PATIENT
  Sex: Male
  Weight: 79.45 kg

DRUGS (7)
  1. HUMIRA [Suspect]
     Indication: CROHN'S DISEASE
     Route: 058
     Dates: start: 20080418, end: 20080418
  2. HUMIRA [Suspect]
     Route: 058
     Dates: start: 20080401, end: 20080401
  3. HUMIRA [Suspect]
     Route: 058
     Dates: start: 20080401
  4. TRAMADOL HCL [Concomitant]
     Indication: PAIN
     Dosage: 1-2 TABS EVERY 4-6 HOURS
     Route: 048
     Dates: start: 20060101
  5. ZOLPIDEM TARTRATE [Concomitant]
     Indication: SLEEP DISORDER THERAPY
     Route: 048
     Dates: start: 20080501
  6. HYDROXOCOBALAMIN [Concomitant]
     Indication: VITAMIN SUPPLEMENTATION
     Route: 030
     Dates: start: 20070101
  7. MEGA MAN VITAMINS [Concomitant]
     Indication: VITAMIN SUPPLEMENTATION
     Route: 048

REACTIONS (10)
  - ABDOMINAL PAIN UPPER [None]
  - ASTHENIA [None]
  - DIARRHOEA [None]
  - DIZZINESS [None]
  - MIDDLE EAR EFFUSION [None]
  - NAUSEA [None]
  - OTITIS MEDIA [None]
  - SENSORY DISTURBANCE [None]
  - SINUS OPERATION [None]
  - TINNITUS [None]
